FAERS Safety Report 24105449 (Version 1)
Quarter: 2024Q3

REPORT INFORMATION
  Report Type: Spontaneous
  Country: IT (occurrence: IT)
  Receive Date: 20240717
  Receipt Date: 20240717
  Transmission Date: 20241016
  Serious: Yes (Other)
  Sender: MERCK
  Company Number: None

PATIENT
  Age: 39 Year
  Sex: Female

DRUGS (3)
  1. KEYTRUDA [Suspect]
     Active Substance: PEMBROLIZUMAB
     Indication: Breast neoplasm
     Dosage: 200 MILLIGRAM, Q3W
     Route: 042
     Dates: start: 20240228, end: 20240424
  2. PACLITAXEL [Concomitant]
     Active Substance: PACLITAXEL
     Indication: Breast neoplasm
     Dosage: 150 MILLIGRAM, QW; FORMULATION: SOLUTION FOR INFUSION
     Route: 042
  3. CARBOPLATIN [Concomitant]
     Active Substance: CARBOPLATIN
     Indication: Breast neoplasm
     Dosage: 290 MILLIGRAM, QW
     Route: 042
     Dates: start: 20240228, end: 20240612

REACTIONS (3)
  - Rash erythematous [Recovered/Resolved]
  - Thrombocytopenia [Recovered/Resolved]
  - Neutropenia [Recovered/Resolved]

NARRATIVE: CASE EVENT DATE: 20240513
